FAERS Safety Report 4449943-3 (Version None)
Quarter: 2004Q3

REPORT INFORMATION
  Report Type: 
  Country: None (occurrence: None)
  Receive Date: 20040915
  Receipt Date: 20040906
  Transmission Date: 20050211
  Serious: Yes (Hospitalization)
  Sender: FDA-Public Use
  Company Number: IL-GLAXOSMITHKLINE-B0344959A

PATIENT
  Sex: Male

DRUGS (5)
  1. ZYBAN [Suspect]
     Indication: EX-SMOKER
     Route: 065
  2. ASPIRIN [Concomitant]
     Route: 065
  3. SIMVASTATIN [Concomitant]
     Route: 065
  4. TRITACE [Concomitant]
     Route: 065
  5. VITAMIN B12 + B6 [Concomitant]
     Route: 065

REACTIONS (2)
  - CHEST PAIN [None]
  - FEELING ABNORMAL [None]
